FAERS Safety Report 14284958 (Version 1)
Quarter: 2017Q4

REPORT INFORMATION
  Report Type: Spontaneous
  Country: US (occurrence: None)
  Receive Date: 20171214
  Receipt Date: 20171214
  Transmission Date: 20180321
  Serious: No
  Sender: FDA-Public Use
  Company Number: None

PATIENT
  Age: 36 Year
  Sex: Female
  Weight: 76.66 kg

DRUGS (4)
  1. BIOTIN [Concomitant]
     Active Substance: BIOTIN
  2. VITAMIN SUPPLEMENT [Concomitant]
     Active Substance: VITAMINS
  3. MULTIVITAMIN [Concomitant]
     Active Substance: VITAMINS
  4. MIRENA [Suspect]
     Active Substance: LEVONORGESTREL
     Dates: start: 20161130

REACTIONS (1)
  - Alopecia [None]

NARRATIVE: CASE EVENT DATE: 20161130
